FAERS Safety Report 12936945 (Version 1)
Quarter: 2016Q4

REPORT INFORMATION
  Report Type: Report from Study
  Country: None (occurrence: MX)
  Receive Date: 20161114
  Receipt Date: 20161114
  Transmission Date: 20170207
  Serious: Yes (Hospitalization)
  Sender: FDA-Public Use
  Company Number: MX-ABBVIE-16K-107-1777297-00

PATIENT
  Weight: 41 kg

DRUGS (1)
  1. HUMIRA [Suspect]
     Active Substance: ADALIMUMAB
     Indication: PSORIASIS
     Route: 058
     Dates: start: 20111111, end: 20160721

REACTIONS (4)
  - Weight decreased [Recovering/Resolving]
  - Immunodeficiency [Recovering/Resolving]
  - Blood glucose increased [Unknown]
  - Hypertension [Recovering/Resolving]
